FAERS Safety Report 10367960 (Version 1)
Quarter: 2014Q3

REPORT INFORMATION
  Report Type: Spontaneous
  Country: CN (occurrence: None)
  Receive Date: 20140805
  Receipt Date: 20140805
  Transmission Date: 20150326
  Serious: Yes (Hospitalization)
  Sender: FDA-Public Use
  Company Number: 2014AMD00052

PATIENT
  Age: 49 Year
  Sex: Male

DRUGS (2)
  1. ZENTEL (ALBENDAZOLE) TABLET [Suspect]
     Active Substance: ALBENDAZOLE
     Indication: HELMINTHIC INFECTION
     Dosage: 2 CAPSULES, 1X/DAY, ORAL
     Route: 048
     Dates: start: 20130928, end: 20130929
  2. AMLODIPINE BESYLATE. [Concomitant]
     Active Substance: AMLODIPINE BESYLATE

REACTIONS (3)
  - Lip haemorrhage [None]
  - Muscular weakness [None]
  - Pyrexia [None]

NARRATIVE: CASE EVENT DATE: 20130929
